FAERS Safety Report 8990441 (Version 1)
Quarter: 2012Q4

REPORT INFORMATION
  Report Type: Report from Study
  Country: DE (occurrence: DE)
  Receive Date: 20121228
  Receipt Date: 20121228
  Transmission Date: 20130627
  Serious: Yes (Hospitalization)
  Sender: FDA-Public Use
  Company Number: DE-TEVA-2009010030

PATIENT
  Age: 68 Year
  Sex: Male
  Weight: 92 kg

DRUGS (8)
  1. TREANDA [Suspect]
     Indication: NON-HODGKIN^S LYMPHOMA
     Route: 041
     Dates: start: 20090806, end: 20090807
  2. RITUXIMAB [Concomitant]
     Indication: NON-HODGKIN^S LYMPHOMA
     Route: 042
     Dates: start: 20090805, end: 20090805
  3. RITUXIMAB [Concomitant]
     Route: 042
     Dates: start: 20090902, end: 20090902
  4. AMLODIPINE [Concomitant]
  5. BENAZEPRIL [Concomitant]
  6. PANTOZOL [Concomitant]
  7. IBUPROFEN [Concomitant]
  8. MUSARIL [Concomitant]

REACTIONS (3)
  - General physical health deterioration [Unknown]
  - Pain in extremity [Unknown]
  - Hypersensitivity [Recovered/Resolved]
